FAERS Safety Report 16023988 (Version 6)
Quarter: 2019Q2

REPORT INFORMATION
  Report Type: Spontaneous
  Country: US (occurrence: US)
  Receive Date: 20190301
  Receipt Date: 20190617
  Transmission Date: 20190711
  Serious: Yes (Hospitalization, Other)
  Sender: FDA-Public Use
  Company Number: US-GLAXOSMITHKLINE-US2019GSK037220

PATIENT
  Sex: Male

DRUGS (4)
  1. PANTOPRAZOLE [Suspect]
     Active Substance: PANTOPRAZOLE
     Indication: GASTROOESOPHAGEAL REFLUX DISEASE
     Dosage: 40 MG, QD
     Route: 048
  2. OMEPRAZOLE. [Suspect]
     Active Substance: OMEPRAZOLE
     Indication: GASTROOESOPHAGEAL REFLUX DISEASE
     Dosage: 40 MG, QD
     Route: 048
  3. OMEPRAZOLE. [Suspect]
     Active Substance: OMEPRAZOLE
     Indication: GASTROOESOPHAGEAL REFLUX DISEASE
     Dosage: UNK
     Route: 065
  4. PREVACID [Suspect]
     Active Substance: LANSOPRAZOLE
     Indication: GASTROOESOPHAGEAL REFLUX DISEASE
     Dosage: 15 MG, QD
     Route: 065

REACTIONS (24)
  - End stage renal disease [Unknown]
  - Acute kidney injury [Unknown]
  - Renal pain [Unknown]
  - Calculus urinary [Unknown]
  - Renal disorder [Unknown]
  - Hypertensive nephropathy [Unknown]
  - Renal failure [Unknown]
  - Micturition frequency decreased [Unknown]
  - Renal impairment [Unknown]
  - Single functional kidney [Unknown]
  - Pyelonephritis [Unknown]
  - Proteinuria [Unknown]
  - Kidney enlargement [Unknown]
  - Pyuria [Unknown]
  - Renal transplant [Unknown]
  - Chronic kidney disease [Unknown]
  - Renal cyst [Unknown]
  - Blood creatinine increased [Unknown]
  - Renal mass [Unknown]
  - Nephropathy [Unknown]
  - Renal injury [Unknown]
  - Tubulointerstitial nephritis [Unknown]
  - Pyelonephritis acute [Unknown]
  - Nocturia [Unknown]
